FAERS Safety Report 20536676 (Version 1)
Quarter: 2022Q1

REPORT INFORMATION
  Report Type: Report from Study
  Country: NL (occurrence: NL)
  Receive Date: 20220302
  Receipt Date: 20220302
  Transmission Date: 20220423
  Serious: Yes (Hospitalization)
  Sender: FDA-Public Use
  Company Number: NL-BAYER-2021A228695

PATIENT
  Age: 56 Year
  Sex: Female

DRUGS (8)
  1. RIVAROXABAN [Suspect]
     Active Substance: RIVAROXABAN
     Indication: Chronic coronary syndrome
     Dosage: 2.5 MG, BID
     Route: 048
     Dates: start: 20210702, end: 20210722
  2. RIVAROXABAN [Suspect]
     Active Substance: RIVAROXABAN
     Indication: Cardiovascular event prophylaxis
     Dosage: 2.5 MG, QD
     Route: 048
  3. RIVAROXABAN [Suspect]
     Active Substance: RIVAROXABAN
     Route: 048
  4. ASPIRIN [Suspect]
     Active Substance: ASPIRIN
     Indication: Chronic coronary syndrome
     Dosage: UNK
     Route: 065
     Dates: start: 20130918
  5. ASPIRIN [Suspect]
     Active Substance: ASPIRIN
     Indication: Cardiovascular event prophylaxis
  6. DEXAMETHASONE [Concomitant]
     Active Substance: DEXAMETHASONE
     Dosage: UNK
  7. CLEMASTINE FUMARATE [Concomitant]
     Active Substance: CLEMASTINE FUMARATE
     Dosage: UNK
  8. EPINEPHRINE [Concomitant]
     Active Substance: EPINEPHRINE
     Dosage: UNK

REACTIONS (2)
  - Dyspnoea [Recovered/Resolved]
  - Swollen tongue [Recovered/Resolved]

NARRATIVE: CASE EVENT DATE: 20210713
